FAERS Safety Report 9122479 (Version 1)
Quarter: 2013Q1

REPORT INFORMATION
  Report Type: Spontaneous
  Country: BR (occurrence: BR)
  Receive Date: 20130227
  Receipt Date: 20130227
  Transmission Date: 20140127
  Serious: Yes (Hospitalization)
  Sender: FDA-Public Use
  Company Number: PHHY2013BR017947

PATIENT
  Sex: Male
  Weight: 8 kg

DRUGS (3)
  1. DIOVAN HCT [Suspect]
     Dosage: MATERNAL DOSE 1 DF (320 MG VALS AND 12.5 MG HYDRO), DAILY
     Route: 064
  2. METHYLDOPA [Concomitant]
     Dosage: MATERNAL DOSE 250 MG, EACH 8 HOURS
     Route: 064
  3. LOSARTAN [Concomitant]
     Indication: HYPERTENSION
     Dosage: MATERNAL DOSE 1 TABLET DAILY
     Route: 064

REACTIONS (2)
  - Moaning [Recovering/Resolving]
  - Foetal exposure during pregnancy [Unknown]
